FAERS Safety Report 13791729 (Version 1)
Quarter: 2017Q3

REPORT INFORMATION
  Report Type: Spontaneous
  Country: FR (occurrence: FR)
  Receive Date: 20170725
  Receipt Date: 20170725
  Transmission Date: 20171127
  Serious: Yes (Hospitalization)
  Sender: FDA-Public Use
  Company Number: FR-009507513-1707FRA009306

PATIENT
  Age: 42 Year
  Sex: Female

DRUGS (4)
  1. EPIVIR [Suspect]
     Active Substance: LAMIVUDINE
     Dosage: 1 DF, BID
  2. BACTRIM [Suspect]
     Active Substance: SULFAMETHOXAZOLE\TRIMETHOPRIM
     Dosage: 1 DF, BID
  3. ZERIT [Suspect]
     Active Substance: STAVUDINE
     Dosage: 1 DF, BID
  4. CRIXIVAN [Suspect]
     Active Substance: INDINAVIR SULFATE
     Dosage: 2 DF, TID
     Route: 048

REACTIONS (1)
  - Osteonecrosis [Recovered/Resolved]

NARRATIVE: CASE EVENT DATE: 199905
